FAERS Safety Report 10334582 (Version 1)
Quarter: 2014Q3

REPORT INFORMATION
  Report Type: Spontaneous
  Country: US (occurrence: US)
  Receive Date: 20140723
  Receipt Date: 20140723
  Transmission Date: 20150326
  Serious: No
  Sender: FDA-Public Use
  Company Number: US-UNITED THERAPEUTICS-UTC-045619

PATIENT
  Sex: Female
  Weight: 71.66 kg

DRUGS (1)
  1. TYVASO [Suspect]
     Active Substance: TREPROSTINIL
     Dosage: 12-54 MICROGRAMS
     Dates: start: 20110426

REACTIONS (2)
  - Throat irritation [Unknown]
  - Upper-airway cough syndrome [Unknown]
